FAERS Safety Report 7205360-4 (Version None)
Quarter: 2010Q4

REPORT INFORMATION
  Report Type: 
  Country: None (occurrence: None)
  Receive Date: 20101231
  Receipt Date: 20101223
  Transmission Date: 20110411
  Serious: Yes (Hospitalization)
  Sender: FDA-Public Use
  Company Number: US-US-EMD SERONO, INC.-7033228

PATIENT
  Sex: Female

DRUGS (6)
  1. REBIF [Suspect]
     Indication: MULTIPLE SCLEROSIS
     Route: 058
     Dates: start: 20100301
  2. STEROIDS [Suspect]
     Indication: MULTIPLE SCLEROSIS RELAPSE
     Route: 042
     Dates: start: 20091101
  3. STEROIDS [Suspect]
     Route: 042
     Dates: start: 20100101
  4. SYNTHROID [Concomitant]
     Indication: HYPOTHYROIDISM
  5. BENTYL [Concomitant]
     Indication: IRRITABLE BOWEL SYNDROME
  6. UNSPECIFIED BLOOD THINNER [Concomitant]

REACTIONS (5)
  - HEART RATE INCREASED [None]
  - HYPOTENSION [None]
  - INFLUENZA LIKE ILLNESS [None]
  - OSTEONECROSIS [None]
  - PYREXIA [None]
